FAERS Safety Report 6741134-6 (Version None)
Quarter: 2010Q2

REPORT INFORMATION
  Report Type: 
  Country: None (occurrence: None)
  Receive Date: 20100525
  Receipt Date: 20100525
  Transmission Date: 20101027
  Serious: Yes (Other)
  Sender: FDA-Public Use
  Company Number: None

PATIENT
  Age: 46 Year
  Sex: Female
  Weight: 104.3273 kg

DRUGS (2)
  1. QUETIAPINE [Suspect]
     Indication: BIPOLAR DISORDER
     Dosage: 200 MG TWICE DAILY PO
     Route: 048
  2. DEPAKOTE ER [Suspect]
     Indication: CONVULSION
     Dosage: 1000 MG ONCE DAILY PO
     Route: 048

REACTIONS (5)
  - AKATHISIA [None]
  - DYSKINESIA [None]
  - MUSCLE CONTRACTIONS INVOLUNTARY [None]
  - RESTLESSNESS [None]
  - TREMOR [None]
